FAERS Safety Report 21404082 (Version 1)
Quarter: 2022Q4

REPORT INFORMATION
  Report Type: Spontaneous
  Country: US (occurrence: None)
  Receive Date: 20221003
  Receipt Date: 20221003
  Transmission Date: 20230113
  Serious: Yes (Death)
  Sender: FDA-Public Use
  Company Number: None

PATIENT
  Age: 63 Year
  Sex: Female
  Weight: 71 kg

DRUGS (3)
  1. RIBOCICLIB [Suspect]
     Active Substance: RIBOCICLIB
     Indication: Hormone receptor positive breast cancer
     Dosage: FREQUENCY : DAILY;?
     Route: 048
     Dates: start: 20220914, end: 20220926
  2. RIBOCICLIB [Suspect]
     Active Substance: RIBOCICLIB
     Indication: Breast cancer metastatic
  3. LETROZOLE [Concomitant]
     Active Substance: LETROZOLE
     Dates: start: 20220713, end: 20220926

REACTIONS (1)
  - Pneumonitis [None]

NARRATIVE: CASE EVENT DATE: 20221001
